FAERS Safety Report 18243774 (Version 1)
Quarter: 2020Q3

REPORT INFORMATION
  Report Type: Spontaneous
  Country: US (occurrence: US)
  Receive Date: 20200908
  Receipt Date: 20200908
  Transmission Date: 20201103
  Serious: Yes (Other)
  Sender: FDA-Public Use
  Company Number: US-PURDUE-USA-2020-0165109

PATIENT

DRUGS (1)
  1. OXYCONTIN [Suspect]
     Active Substance: OXYCODONE HYDROCHLORIDE
     Indication: PRODUCT USED FOR UNKNOWN INDICATION
     Dosage: UNK
     Route: 048
     Dates: start: 2008

REACTIONS (8)
  - Drug abuse [Unknown]
  - Peripheral nerve injury [Unknown]
  - Product prescribing issue [Unknown]
  - Drug dependence [Unknown]
  - Peroneal nerve palsy [Unknown]
  - Unevaluable event [Unknown]
  - Overdose [Unknown]
  - Limb injury [Unknown]
